FAERS Safety Report 7772253-3 (Version None)
Quarter: 2011Q3

REPORT INFORMATION
  Report Type: 
  Country: None (occurrence: None)
  Receive Date: 20110922
  Receipt Date: 20101118
  Transmission Date: 20111222
  Serious: No
  Sender: FDA-Public Use
  Company Number: US-ASTRAZENECA-2010SE55204

PATIENT
  Sex: Male
  Weight: 69.9 kg

DRUGS (3)
  1. CITALOPRAM HYDROBROMIDE [Concomitant]
     Indication: POST-TRAUMATIC STRESS DISORDER
     Route: 065
  2. XANAX [Concomitant]
     Indication: POST-TRAUMATIC STRESS DISORDER
     Route: 065
  3. SEROQUEL [Suspect]
     Indication: POST-TRAUMATIC STRESS DISORDER
     Route: 048

REACTIONS (2)
  - DRUG DOSE OMISSION [None]
  - MALAISE [None]
